FAERS Safety Report 6154938-8 (Version None)
Quarter: 2009Q2

REPORT INFORMATION
  Report Type: 
  Country: None (occurrence: None)
  Receive Date: 20090414
  Receipt Date: 20090402
  Transmission Date: 20091009
  Serious: Yes (Other)
  Sender: FDA-Public Use
  Company Number: US-PFIZER INC-2009193195

PATIENT
  Sex: Female
  Weight: 65.306 kg

DRUGS (4)
  1. GEODON [Suspect]
     Indication: BIPOLAR DISORDER
     Dosage: 20 MG, 2X/DAY
     Dates: start: 20090101, end: 20090331
  2. ALPRAZOLAM [Suspect]
     Indication: ANXIETY
  3. ABILIFY [Suspect]
  4. ZOLOFT [Concomitant]
     Dosage: UNK

REACTIONS (19)
  - ABASIA [None]
  - ARTHRALGIA [None]
  - ASTHENIA [None]
  - BLOOD CHOLESTEROL INCREASED [None]
  - CHILLS [None]
  - DELUSION [None]
  - DYSPNOEA [None]
  - HALLUCINATION [None]
  - HYPERHIDROSIS [None]
  - MANIA [None]
  - MEDICATION ERROR [None]
  - MEMORY IMPAIRMENT [None]
  - MUSCLE SPASMS [None]
  - MYALGIA [None]
  - PRODUCT QUALITY ISSUE [None]
  - RESTLESSNESS [None]
  - TACHYPHRENIA [None]
  - TREMOR [None]
  - VISUAL IMPAIRMENT [None]
